FAERS Safety Report 8421745-2 (Version None)
Quarter: 2012Q2

REPORT INFORMATION
  Report Type: 
  Country: None (occurrence: None)
  Receive Date: 20120608
  Receipt Date: 20120531
  Transmission Date: 20120825
  Serious: Yes (Life-Threatening, Hospitalization, Other)
  Sender: FDA-Public Use
  Company Number: GB-BRISTOL-MYERS SQUIBB COMPANY-16655425

PATIENT
  Age: 90 Year
  Sex: Female

DRUGS (11)
  1. IRBESARTAN AND HYDROCHLOROTHIAZIDE [Suspect]
     Indication: HYPERTENSION
     Route: 048
     Dates: start: 20060101, end: 20111227
  2. RASILEZ [Suspect]
     Indication: DIABETES MELLITUS
     Dates: start: 20090320, end: 20111201
  3. ALLOPURINOL [Concomitant]
  4. REPAGLINIDE [Concomitant]
  5. FUROSEMID PHARMAVIT [Concomitant]
  6. OMEPRAZOLE [Concomitant]
  7. AMLODIPINE [Suspect]
     Indication: HYPERTENSION
     Dates: start: 20040101, end: 20111227
  8. DIGITOXIN TAB [Suspect]
     Indication: CARDIAC FAILURE
     Dates: start: 20000101, end: 20111227
  9. ISOSORBIDE MONONITRATE [Concomitant]
  10. SIMVASTATIN [Concomitant]
  11. ACETYLSALICYLIC ACID SRT [Concomitant]

REACTIONS (4)
  - BRADYARRHYTHMIA [None]
  - CARDIAC FAILURE [None]
  - HYPERKALAEMIA [None]
  - TOXICITY TO VARIOUS AGENTS [None]
